FAERS Safety Report 20144041 (Version 4)
Quarter: 2022Q1

REPORT INFORMATION
  Report Type: Report from Study
  Country: US (occurrence: US)
  Receive Date: 20211203
  Receipt Date: 20220215
  Transmission Date: 20220423
  Serious: Yes (Other)
  Sender: FDA-Public Use
  Company Number: US-ABBVIE-21K-163-4143188-00

PATIENT
  Sex: Female
  Weight: 62.652 kg

DRUGS (19)
  1. HUMIRA [Suspect]
     Active Substance: ADALIMUMAB
     Indication: Crohn^s disease
     Dosage: CITRATE FREE
     Route: 058
     Dates: start: 2007, end: 20210316
  2. HUMIRA [Suspect]
     Active Substance: ADALIMUMAB
     Dosage: CITRATE FREE
     Route: 058
     Dates: start: 20210413
  3. HUMIRA [Suspect]
     Active Substance: ADALIMUMAB
     Route: 058
  4. JANSSEN COVID-19 VACCINE [Suspect]
     Active Substance: AD26.COV2.S
     Indication: COVID-19 immunisation
     Dosage: JOHNSON AND JOHNSON
     Route: 030
     Dates: start: 20210330, end: 20210330
  5. CALCITRIOL [Concomitant]
     Active Substance: CALCITRIOL
     Indication: Osteoporosis
  6. PROZAC [Concomitant]
     Active Substance: FLUOXETINE HYDROCHLORIDE
     Indication: Depression
  7. RITALIN [Concomitant]
     Active Substance: METHYLPHENIDATE HYDROCHLORIDE
     Indication: Attention deficit hyperactivity disorder
  8. MEDROL [Concomitant]
     Active Substance: METHYLPREDNISOLONE
     Indication: Systemic lupus erythematosus
  9. FLOMAX [Concomitant]
     Active Substance: TAMSULOSIN HYDROCHLORIDE
     Indication: Nephrolithiasis
  10. DIFLUCAN [Concomitant]
     Active Substance: FLUCONAZOLE
     Indication: Abdominal pain upper
  11. PROTONIX [Concomitant]
     Active Substance: PANTOPRAZOLE SODIUM
     Indication: Gastrooesophageal reflux disease
  12. HYDROCODONE [Concomitant]
     Active Substance: HYDROCODONE
     Indication: Pain
  13. VITAMIN B12 [Concomitant]
     Active Substance: CYANOCOBALAMIN
     Indication: Supplementation therapy
  14. FEROZORB [Concomitant]
     Indication: Supplementation therapy
  15. DIETARY SUPPLEMENT [Concomitant]
     Active Substance: DIETARY SUPPLEMENT
     Indication: Supplementation therapy
  16. NAC [Concomitant]
     Indication: Supplementation therapy
  17. OMEGAGENICS EPA DHA [Concomitant]
     Indication: Supplementation therapy
  18. DL-PHENYLALANINE [Concomitant]
     Active Substance: PHENYLALANINE, DL-
     Indication: Arthralgia
  19. PERFUSIA [Concomitant]
     Indication: Supplementation therapy

REACTIONS (19)
  - Systemic lupus erythematosus [Recovering/Resolving]
  - Ileostomy [Unknown]
  - Illness [Not Recovered/Not Resolved]
  - Stoma site haemorrhage [Not Recovered/Not Resolved]
  - Somnolence [Unknown]
  - Fibromyalgia [Recovering/Resolving]
  - Inflammation [Unknown]
  - Dehydration [Unknown]
  - Crohn^s disease [Not Recovered/Not Resolved]
  - Alopecia [Unknown]
  - Pain [Recovering/Resolving]
  - Viral infection [Recovering/Resolving]
  - Back pain [Recovering/Resolving]
  - Pain of skin [Recovering/Resolving]
  - Pain in extremity [Recovering/Resolving]
  - Mobility decreased [Recovering/Resolving]
  - Pain in extremity [Not Recovered/Not Resolved]
  - Arthralgia [Not Recovered/Not Resolved]
  - Back pain [Not Recovered/Not Resolved]

NARRATIVE: CASE EVENT DATE: 20210101
